FAERS Safety Report 19185732 (Version 2)
Quarter: 2021Q2

REPORT INFORMATION
  Report Type: Spontaneous
  Country: HR (occurrence: HR)
  Receive Date: 20210427
  Receipt Date: 20210625
  Transmission Date: 20210717
  Serious: Yes (Hospitalization, Other)
  Sender: FDA-Public Use
  Company Number: HR-B.I. PHARMACEUTICALS,INC./RIDGEFIELD-2021-BI-097910

PATIENT
  Age: 71 Year
  Sex: Male

DRUGS (6)
  1. RIVASTIGMINE. [Suspect]
     Active Substance: RIVASTIGMINE
     Indication: DEMENTIA
  2. ESCITALOPRAM [Suspect]
     Active Substance: ESCITALOPRAM OXALATE
     Indication: HALLUCINATION
     Route: 065
  3. CARBIDOPA;LEVODOPA [Concomitant]
     Active Substance: CARBIDOPA\LEVODOPA
     Indication: PARKINSON^S DISEASE
     Dosage: 250/25 MG THRICE A DAY
  4. CLOZAPINE. [Suspect]
     Active Substance: CLOZAPINE
     Indication: PRODUCT USED FOR UNKNOWN INDICATION
  5. OLANZAPINE. [Suspect]
     Active Substance: OLANZAPINE
     Indication: HALLUCINATION
     Route: 065
  6. SIFROL [Suspect]
     Active Substance: PRAMIPEXOLE
     Indication: EXTRAPYRAMIDAL DISORDER
     Route: 065

REACTIONS (27)
  - Cerebral atrophy [Unknown]
  - Drug intolerance [Unknown]
  - Frustration tolerance decreased [Unknown]
  - Hallucination, visual [Unknown]
  - Somnolence [Unknown]
  - Arrhythmia [Unknown]
  - Flat affect [Unknown]
  - Depressive symptom [Unknown]
  - Bradykinesia [Unknown]
  - Hypotension [Unknown]
  - Extrapyramidal disorder [Unknown]
  - Drug tolerance decreased [Unknown]
  - Memory impairment [Unknown]
  - Illiteracy [Unknown]
  - Disturbance in attention [Unknown]
  - Cognitive disorder [Unknown]
  - Reduced facial expression [Unknown]
  - Syncope [Unknown]
  - Anosmia [Unknown]
  - Hallucination [Unknown]
  - Disorientation [Unknown]
  - Learning disorder [Unknown]
  - Visual impairment [Unknown]
  - Dysarthria [Unknown]
  - Delirium [Unknown]
  - General physical health deterioration [Unknown]
  - Hallucination, visual [Recovered/Resolved]
